FAERS Safety Report 4636356-4 (Version None)
Quarter: 2005Q2

REPORT INFORMATION
  Report Type: 
  Country: None (occurrence: None)
  Receive Date: 20050415
  Receipt Date: 20050118
  Transmission Date: 20051028
  Serious: Yes (Life-Threatening)
  Sender: FDA-Public Use
  Company Number: US-BRISTOL-MYERS SQUIBB COMPANY-12828711

PATIENT
  Age: 53 Year
  Sex: Female
  Weight: 92 kg

DRUGS (21)
  1. CARBOPLATIN [Suspect]
     Indication: OVARIAN CANCER
     Dosage: ADD'L: LOT#4K93508; EXP.30-APR-2006, LOT #4H69246; EXP.30-JAN-2006; 3RD DOSE ADMIN. 18-JAN-2005
     Route: 042
     Dates: start: 20041229, end: 20041229
  2. TAGAMET [Concomitant]
     Indication: PREMEDICATION
     Route: 042
     Dates: start: 20050118
  3. BENADRYL [Concomitant]
     Indication: PREMEDICATION
     Route: 042
     Dates: start: 20050118
  4. SODIUM CHLORIDE [Concomitant]
     Indication: PREMEDICATION
     Route: 042
     Dates: start: 20050118
  5. DECADRON [Concomitant]
     Indication: PREMEDICATION
     Route: 042
     Dates: start: 20050118
  6. PHENERGAN [Concomitant]
     Indication: PREMEDICATION
     Route: 042
     Dates: start: 20050118
  7. FOSAMAX [Concomitant]
  8. VITAMIN C [Concomitant]
  9. ASPIRIN [Concomitant]
  10. LOTENSIN [Concomitant]
  11. LANOXIN [Concomitant]
  12. LASIX [Concomitant]
  13. VITAMIN E [Concomitant]
  14. ZINC [Concomitant]
  15. SYNTHROID [Concomitant]
  16. TOPROL-XL [Concomitant]
  17. PRILOSEC [Concomitant]
  18. DARVOCET [Concomitant]
  19. CALCIUM GLUCONATE [Concomitant]
  20. BENADRYL [Concomitant]
     Dates: start: 20050118
  21. TAGAMET [Concomitant]
     Dates: start: 20050118

REACTIONS (4)
  - BLOOD PRESSURE DECREASED [None]
  - CHEST DISCOMFORT [None]
  - DYSPNOEA [None]
  - ERYTHEMA [None]
